FAERS Safety Report 16066195 (Version 1)
Quarter: 2019Q2

REPORT INFORMATION
  Report Type: Spontaneous
  Country: US (occurrence: US)
  Receive Date: 20190312
  Receipt Date: 20190312
  Transmission Date: 20190711
  Serious: Yes (Other)
  Sender: FDA-Public Use
  Company Number: None

PATIENT
  Age: 70 Year
  Sex: Male
  Weight: 80.1 kg

DRUGS (6)
  1. SYNTHROID [Concomitant]
     Active Substance: LEVOTHYROXINE SODIUM
  2. PREDNISOLONE AC 1% EYE DROPS [Suspect]
     Active Substance: PREDNISOLONE ACETATE
     Indication: DRY EYE
     Dosage: ?          QUANTITY:1 DROP(S);?
     Route: 047
     Dates: start: 20190305, end: 20190312
  3. ASPIRIN. [Concomitant]
     Active Substance: ASPIRIN
  4. NADOLOL. [Concomitant]
     Active Substance: NADOLOL
  5. HYTRIN [Concomitant]
     Active Substance: TERAZOSIN HYDROCHLORIDE
  6. HCTZ [Concomitant]
     Active Substance: HYDROCHLOROTHIAZIDE

REACTIONS (4)
  - Abdominal discomfort [None]
  - Visual impairment [None]
  - Rash [None]
  - Product physical issue [None]

NARRATIVE: CASE EVENT DATE: 20190312
